FAERS Safety Report 25284815 (Version 1)
Quarter: 2025Q2

REPORT INFORMATION
  Report Type: Report from Study
  Country: GB (occurrence: GB)
  Receive Date: 20250508
  Receipt Date: 20250508
  Transmission Date: 20250717
  Serious: Yes (Hospitalization, Other)
  Sender: SAMSUNG BIOEPIS
  Company Number: GB-SAMSUNG BIOEPIS-SB-2025-15518

PATIENT
  Age: 73 Year
  Sex: Male
  Weight: 106 kg

DRUGS (14)
  1. IMRALDI [Suspect]
     Active Substance: ADALIMUMAB
     Indication: Psoriasis
     Dosage: FORTNIGHTLY;
     Dates: start: 20190910, end: 20200319
  2. IMRALDI [Suspect]
     Active Substance: ADALIMUMAB
     Dosage: FORTNIGHTLY;
     Dates: start: 20220901
  3. BEZAFIBRATE [Concomitant]
     Active Substance: BEZAFIBRATE
     Indication: Product used for unknown indication
     Dates: start: 20060701
  4. DOXAZOSIN [Concomitant]
     Active Substance: DOXAZOSIN MESYLATE
     Indication: Product used for unknown indication
     Dates: start: 20060701
  5. AMLODIPINE [Concomitant]
     Active Substance: AMLODIPINE BESYLATE
     Indication: Product used for unknown indication
     Dates: start: 20081201
  6. OMEPRAZOLE [Concomitant]
     Active Substance: OMEPRAZOLE
     Indication: Product used for unknown indication
     Dates: start: 20120615
  7. COCODAMOL [Concomitant]
     Active Substance: ACETAMINOPHEN\CODEINE PHOSPHATE
     Indication: Product used for unknown indication
     Dates: start: 20130916
  8. FEBUXOSTAT [Concomitant]
     Active Substance: FEBUXOSTAT
     Indication: Product used for unknown indication
     Dates: start: 20151209
  9. ALOGLIPTIN [Concomitant]
     Active Substance: ALOGLIPTIN
     Indication: Product used for unknown indication
     Dates: start: 20180612
  10. CALCIPOTRIENE [Concomitant]
     Active Substance: CALCIPOTRIENE
     Indication: Product used for unknown indication
     Dates: start: 20220617
  11. MODERNA COVID-19 VACCINE [Concomitant]
     Active Substance: ELASOMERAN
     Indication: Product used for unknown indication
     Dates: start: 20240502, end: 20240502
  12. Seasonal flu vaccine [Concomitant]
     Indication: Product used for unknown indication
     Dates: start: 20241121, end: 20241121
  13. COMIRNATY [Concomitant]
     Indication: Product used for unknown indication
     Dates: start: 20241121, end: 20241121
  14. ASPIRIN [Concomitant]
     Active Substance: ASPIRIN
     Indication: Product used for unknown indication
     Dates: start: 20241211

REACTIONS (3)
  - Basal cell carcinoma [Not Recovered/Not Resolved]
  - Cholecystitis [Recovered/Resolved]
  - Wound haemorrhage [Not Recovered/Not Resolved]

NARRATIVE: CASE EVENT DATE: 20231215
